FAERS Safety Report 5312713-8 (Version None)
Quarter: 2007Q2

REPORT INFORMATION
  Report Type: 
  Country: None (occurrence: None)
  Receive Date: 20070430
  Receipt Date: 20070423
  Transmission Date: 20071010
  Serious: Yes (Hospitalization)
  Sender: FDA-Public Use
  Company Number: US-KINGPHARMUSA00001-K200700510

PATIENT

DRUGS (4)
  1. FLORINEF [Suspect]
     Indication: ORTHOSTATIC HYPOTENSION
     Route: 048
     Dates: start: 20061216, end: 20061219
  2. MIDODRINE HYDROCHLORIDE [Suspect]
     Indication: ORTHOSTATIC HYPOTENSION
     Route: 048
     Dates: start: 20061206, end: 20061215
  3. EXELON /01383201/ [Suspect]
     Indication: PSYCHOTIC DISORDER
     Route: 048
     Dates: start: 20061212, end: 20061218
  4. KARDEGIC /00002703/ [Suspect]
     Route: 048
     Dates: start: 20061212

REACTIONS (2)
  - AGITATION [None]
  - CONFUSIONAL STATE [None]
